FAERS Safety Report 11155006 (Version 1)
Quarter: 2015Q2

REPORT INFORMATION
  Report Type: Spontaneous
  Country: US (occurrence: None)
  Receive Date: 20150601
  Receipt Date: 20150601
  Transmission Date: 20150821
  Serious: Yes (Hospitalization)
  Sender: FDA-Public Use
  Company Number: None

PATIENT
  Sex: Female

DRUGS (1)
  1. LITHIUM CARBONATE. [Suspect]
     Active Substance: LITHIUM CARBONATE
     Indication: PRODUCT USED FOR UNKNOWN INDICATION
     Route: 048
     Dates: start: 20150206

REACTIONS (8)
  - Hypotonia [None]
  - Eye irritation [None]
  - Face oedema [None]
  - Gait disturbance [None]
  - Oedema peripheral [None]
  - Skin burning sensation [None]
  - Burning sensation mucosal [None]
  - Mental impairment [None]
